FAERS Safety Report 20866997 (Version 1)
Quarter: 2022Q2

REPORT INFORMATION
  Report Type: Spontaneous
  Country: EG (occurrence: EG)
  Receive Date: 20220524
  Receipt Date: 20220524
  Transmission Date: 20220720
  Serious: Yes (Death, Other)
  Sender: FDA-Public Use
  Company Number: EG-PFIZER INC-202200270601

PATIENT
  Age: 60 Year
  Sex: Male

DRUGS (1)
  1. SUTENT [Suspect]
     Active Substance: SUNITINIB MALATE
     Indication: Metastatic renal cell carcinoma
     Dosage: DAILY FOR 4 WEEKS ON THEN 2 WEEKS OFF
     Route: 048

REACTIONS (4)
  - Death [Fatal]
  - Thrombocytopenia [Unknown]
  - Blood creatinine increased [Unknown]
  - Jaundice [Unknown]
